FAERS Safety Report 11216390 (Version 2)
Quarter: 2015Q3

REPORT INFORMATION
  Report Type: Spontaneous
  Country: BR (occurrence: BR)
  Receive Date: 20150624
  Receipt Date: 20150812
  Transmission Date: 20151125
  Serious: Yes (Hospitalization)
  Sender: FDA-Public Use
  Company Number: BR-GLAXOSMITHKLINE-BR2015GSK088141

PATIENT
  Age: 1 Year
  Sex: Male

DRUGS (6)
  1. AD TIL [Concomitant]
     Dosage: UNK
     Dates: end: 20150608
  2. CLENIL [Suspect]
     Active Substance: BECLOMETHASONE DIPROPIONATE
     Indication: BRONCHITIS
     Dosage: 250 UG, BID
     Route: 055
     Dates: start: 20150605
  3. CLENIL [Concomitant]
     Active Substance: BECLOMETHASONE DIPROPIONATE
     Dosage: UNK
     Dates: start: 201501, end: 20150604
  4. AMOXIL [Concomitant]
     Active Substance: AMOXICILLIN
     Dosage: UNK
     Dates: start: 20150604, end: 20150606
  5. CLENIL [Suspect]
     Active Substance: BECLOMETHASONE DIPROPIONATE
     Indication: OFF LABEL USE
  6. AEROLIN [Concomitant]
     Active Substance: ALBUTEROL
     Dosage: UNK
     Dates: start: 201501, end: 20150604

REACTIONS (5)
  - Diarrhoea [Recovered/Resolved]
  - Bronchitis [Recovered/Resolved]
  - Contraindication to medical treatment [Recovered/Resolved]
  - Off label use [Recovered/Resolved]
  - Pyrexia [Recovered/Resolved]

NARRATIVE: CASE EVENT DATE: 20150605
